FAERS Safety Report 9208750 (Version 3)
Quarter: 2014Q2

REPORT INFORMATION
  Report Type: Spontaneous
  Country: US (occurrence: US)
  Receive Date: 20130404
  Receipt Date: 20140429
  Transmission Date: 20141212
  Serious: No
  Sender: FDA-Public Use
  Company Number: US-PFIZER INC-2013105527

PATIENT
  Age: 78 Year
  Sex: Male

DRUGS (3)
  1. GABAPENTIN [Suspect]
     Indication: PAIN
     Dosage: UNK
  2. GABAPENTIN [Suspect]
     Indication: FIBROMYALGIA
  3. GABAPENTIN [Suspect]
     Indication: OSTEOARTHRITIS

REACTIONS (2)
  - Drug ineffective for unapproved indication [Unknown]
  - Drug intolerance [Unknown]
